FAERS Safety Report 26195019 (Version 2)
Quarter: 2025Q4

REPORT INFORMATION
  Report Type: Spontaneous
  Country: US (occurrence: US)
  Receive Date: 20251224
  Receipt Date: 20251227
  Transmission Date: 20260117
  Serious: No
  Sender: LUPIN
  Company Number: US-LUPIN PHARMACEUTICALS INC.-2025-11396

PATIENT

DRUGS (1)
  1. LEVOTHYROXINE SODIUM [Suspect]
     Active Substance: LEVOTHYROXINE SODIUM
     Indication: Product used for unknown indication
     Dosage: UNK
     Route: 065

REACTIONS (9)
  - Anxiety [Unknown]
  - Feeling abnormal [Unknown]
  - Therapeutic response changed [Unknown]
  - Headache [Unknown]
  - Impaired work ability [Unknown]
  - Insomnia [Unknown]
  - Product substitution issue [Unknown]
  - Resorption bone increased [Unknown]
  - Abdominal pain upper [Unknown]
